FAERS Safety Report 8594642 (Version 2)
Quarter: 2012Q4

REPORT INFORMATION
  Report Type: 
  Country: US (occurrence: US)
  Receive Date: 20120604
  Receipt Date: 20120906
  Transmission Date: 20130627
  Serious: Yes (Hospitalization)
  Sender: FDA-Public Use
  Company Number: US-ASTRAZENECA-2012SE33900

PATIENT
  Age: 66 Year
  Sex: Male

DRUGS (12)
  1. CRESTOR [Suspect]
     Route: 048
  2. LISINOPRIL [Suspect]
     Route: 048
  3. SIMVASTATIN [Concomitant]
  4. ASPIRIN [Concomitant]
  5. INVANZ [Concomitant]
  6. TRICOR [Concomitant]
  7. METFORMIN [Concomitant]
  8. MULTIVITAMIN [Concomitant]
     Dosage: DAILY
  9. NICOTINE [Concomitant]
  10. ADVIL [Concomitant]
     Dosage: AS NEEDED
  11. FENOFIBRATE [Concomitant]
  12. APRESOLINE [Concomitant]

REACTIONS (9)
  - Staphylococcal infection [Unknown]
  - Osteomyelitis [Unknown]
  - Hyperlipidaemia [Unknown]
  - Hypertension [Unknown]
  - Impaired fasting glucose [Unknown]
  - Obesity [Unknown]
  - Hemiparesis [Unknown]
  - Diplopia [Unknown]
  - Type 2 diabetes mellitus [Unknown]
